FAERS Safety Report 10029244 (Version 2)
Quarter: 2014Q2

REPORT INFORMATION
  Report Type: Spontaneous
  Country: US (occurrence: US)
  Receive Date: 20140321
  Receipt Date: 20140411
  Transmission Date: 20141212
  Serious: Yes (Other)
  Sender: FDA-Public Use
  Company Number: PHEH2014US005244

PATIENT
  Age: 83 Year
  Sex: Female
  Weight: 70 kg

DRUGS (7)
  1. AFINITOR [Suspect]
     Indication: BREAST CANCER METASTATIC
     Dosage: 10 MG, UNK
     Route: 048
     Dates: start: 20140215, end: 20140325
  2. AFINITOR [Suspect]
     Dosage: 5 MG, UNK
  3. AFINITOR [Suspect]
     Dosage: 10 UNK, UNK
  4. AROMASIN [Concomitant]
     Dosage: 25 MG, UNK
     Route: 048
     Dates: start: 20140215, end: 20140325
  5. SYNTHROID [Concomitant]
  6. MUCINEX D [Concomitant]
  7. XANAX [Concomitant]

REACTIONS (8)
  - Pneumonitis [Recovering/Resolving]
  - Dyspnoea [Unknown]
  - Cough [Unknown]
  - Fatigue [Unknown]
  - Metastases to pleura [Unknown]
  - Metastases to eye [Unknown]
  - Metastases to bone [Unknown]
  - Stomatitis [Unknown]
